FAERS Safety Report 18254987 (Version 1)
Quarter: 2020Q3

REPORT INFORMATION
  Report Type: Spontaneous
  Country: AU (occurrence: AU)
  Receive Date: 20200910
  Receipt Date: 20200910
  Transmission Date: 20201103
  Serious: Yes (Hospitalization)
  Sender: FDA-Public Use
  Company Number: AU-BIOGEN-2017BI00424216

PATIENT
  Age: 14 Year
  Sex: Female

DRUGS (4)
  1. PLEGRIDY [Suspect]
     Active Substance: PEGINTERFERON BETA-1A
     Route: 050
     Dates: start: 20170707
  2. PLEGRIDY [Suspect]
     Active Substance: PEGINTERFERON BETA-1A
     Route: 050
  3. PLEGRIDY [Suspect]
     Active Substance: PEGINTERFERON BETA-1A
     Indication: MULTIPLE SCLEROSIS
     Route: 050
  4. PLEGRIDY [Suspect]
     Active Substance: PEGINTERFERON BETA-1A
     Route: 050
     Dates: start: 20170707

REACTIONS (24)
  - Coordination abnormal [Not Recovered/Not Resolved]
  - Headache [Recovered/Resolved]
  - Irritability [Unknown]
  - Emotional disorder [Recovered/Resolved]
  - Influenza like illness [Unknown]
  - Abdominal discomfort [Not Recovered/Not Resolved]
  - Motor dysfunction [Not Recovered/Not Resolved]
  - Prescribed underdose [Not Recovered/Not Resolved]
  - Pyrexia [Recovered/Resolved]
  - Drug delivery system malfunction [Unknown]
  - Stress [Not Recovered/Not Resolved]
  - Product administered to patient of inappropriate age [Not Recovered/Not Resolved]
  - Oropharyngeal pain [Recovered/Resolved]
  - Feeling cold [Unknown]
  - Multiple sclerosis [Not Recovered/Not Resolved]
  - Viral infection [Recovered/Resolved]
  - Muscle injury [Recovered/Resolved]
  - Myalgia [Unknown]
  - Injection site erythema [Recovered/Resolved with Sequelae]
  - Malaise [Unknown]
  - Gastrointestinal infection [Recovered/Resolved]
  - Influenza [Not Recovered/Not Resolved]
  - Injection site discomfort [Not Recovered/Not Resolved]
  - Nausea [Unknown]

NARRATIVE: CASE EVENT DATE: 20170707
